FAERS Safety Report 24865525 (Version 1)
Quarter: 2025Q1

REPORT INFORMATION
  Report Type: Spontaneous
  Country: IN (occurrence: IN)
  Receive Date: 20250121
  Receipt Date: 20250121
  Transmission Date: 20250409
  Serious: Yes (Other)
  Sender: AMGEN
  Company Number: IN-AMGEN-INDSP2025007085

PATIENT
  Age: 38 Year
  Sex: Female

DRUGS (3)
  1. PEGFILGRASTIM [Suspect]
     Active Substance: PEGFILGRASTIM
     Indication: Prophylaxis
     Route: 058
  2. IFOSFAMIDE [Concomitant]
     Active Substance: IFOSFAMIDE
     Indication: Myxofibrosarcoma
     Route: 040
  3. DOXORUBICIN [Concomitant]
     Active Substance: DOXORUBICIN
     Indication: Myxofibrosarcoma
     Route: 040

REACTIONS (1)
  - Febrile neutropenia [Unknown]
